FAERS Safety Report 12770650 (Version 1)
Quarter: 2016Q3

REPORT INFORMATION
  Report Type: Spontaneous
  Country: AM (occurrence: AM)
  Receive Date: 20160922
  Receipt Date: 20160922
  Transmission Date: 20161109
  Serious: Yes (Other)
  Sender: FDA-Public Use
  Company Number: AM-JNJFOC-20160914437

PATIENT
  Age: 54 Year
  Sex: Male

DRUGS (13)
  1. BEDAQUILINE [Suspect]
     Active Substance: BEDAQUILINE
     Indication: TUBERCULOSIS
     Route: 065
     Dates: start: 20151118, end: 20160909
  2. FTC [Concomitant]
     Active Substance: EMTRICITABINE
     Route: 065
  3. LOPINAVIR W/RITONAVIR [Concomitant]
     Active Substance: LOPINAVIR\RITONAVIR
     Route: 065
  4. IMIPENEM [Suspect]
     Active Substance: IMIPENEM
     Indication: TUBERCULOSIS
     Route: 065
     Dates: start: 20151118, end: 20160909
  5. AMOXICILLIN W/CLAVULANIC ACID [Suspect]
     Active Substance: AMOXICILLIN\CLAVULANIC ACID
     Indication: TUBERCULOSIS
     Route: 065
     Dates: start: 20151118, end: 20160909
  6. CLOFAZIMINE [Suspect]
     Active Substance: CLOFAZIMINE
     Indication: TUBERCULOSIS
     Route: 065
     Dates: start: 20160506, end: 20160708
  7. CYCLOSERINE. [Suspect]
     Active Substance: CYCLOSERINE
     Indication: TUBERCULOSIS
     Route: 065
     Dates: start: 20151118, end: 20160909
  8. PARA-AMINOSALICYLIC ACID [Suspect]
     Active Substance: AMINOSALICYLIC ACID
     Indication: TUBERCULOSIS
     Route: 065
     Dates: start: 20160321, end: 20160909
  9. LINEZOLID. [Suspect]
     Active Substance: LINEZOLID
     Indication: TUBERCULOSIS
     Route: 065
     Dates: start: 20151118, end: 20160506
  10. DELAMANID [Suspect]
     Active Substance: DELAMANID
     Indication: TUBERCULOSIS
     Route: 065
     Dates: start: 20160713, end: 20160909
  11. TDF [Concomitant]
     Active Substance: DILOXANIDE FUROATE\TINIDAZOLE
     Route: 065
  12. VITAMIN B6 [Concomitant]
     Active Substance: PYRIDOXINE HYDROCHLORIDE
     Route: 065
  13. COTRIMOXAZOLE [Concomitant]
     Active Substance: SULFAMETHOXAZOLE\TRIMETHOPRIM
     Route: 065

REACTIONS (3)
  - Vomiting [Not Recovered/Not Resolved]
  - Nausea [Not Recovered/Not Resolved]
  - Diarrhoea [Not Recovered/Not Resolved]

NARRATIVE: CASE EVENT DATE: 20160905
